FAERS Safety Report 9875444 (Version 1)
Quarter: 2014Q1

REPORT INFORMATION
  Report Type: Spontaneous
  Country: US (occurrence: None)
  Receive Date: 20140205
  Receipt Date: 20140205
  Transmission Date: 20141002
  Serious: Yes (Other)
  Sender: FDA-Public Use
  Company Number: None

PATIENT
  Age: 64 Year
  Sex: Female
  Weight: 86 kg

DRUGS (2)
  1. DULOXETINE [Suspect]
     Indication: ANXIETY
     Route: 048
     Dates: start: 20140101, end: 20140127
  2. DULOXETINE [Suspect]
     Indication: PAIN
     Route: 048
     Dates: start: 20140101, end: 20140127

REACTIONS (2)
  - Anxiety [None]
  - Pain [None]
